FAERS Safety Report 4831046-7 (Version None)
Quarter: 2005Q4

REPORT INFORMATION
  Report Type: 
  Country: None (occurrence: None)
  Receive Date: 20051115
  Receipt Date: 20051115
  Transmission Date: 20060501
  Serious: Yes (Hospitalization)
  Sender: FDA-Public Use
  Company Number: None

PATIENT
  Age: 68 Year
  Sex: Female

DRUGS (1)
  1. ZOLOFT [Suspect]
     Indication: DEPRESSION
     Dosage: 100 MG PO QD
     Route: 048

REACTIONS (11)
  - ANAEMIA [None]
  - ANXIETY [None]
  - COLD AGGLUTININS POSITIVE [None]
  - DEPRESSION [None]
  - DIZZINESS [None]
  - DYSGRAPHIA [None]
  - DYSPHAGIA [None]
  - HYPONATRAEMIA [None]
  - MENTAL IMPAIRMENT [None]
  - RESPIRATORY DISORDER [None]
  - SPEECH DISORDER [None]
